FAERS Safety Report 20807580 (Version 1)
Quarter: 2022Q2

REPORT INFORMATION
  Report Type: Report from Study
  Country: CA (occurrence: CA)
  Receive Date: 20220510
  Receipt Date: 20220510
  Transmission Date: 20220720
  Serious: Yes (Other)
  Sender: FDA-Public Use
  Company Number: None

PATIENT
  Age: 63 Year
  Sex: Male

DRUGS (2)
  1. AMLODIPINE [Interacting]
     Active Substance: AMLODIPINE BESYLATE
     Indication: Blood pressure increased
     Dosage: 1 EVERY 1 DAYS
  2. APALUTAMIDE [Interacting]
     Active Substance: APALUTAMIDE
     Indication: Prostate cancer
     Dosage: 1 EVERY 1 DAYS
     Route: 048

REACTIONS (2)
  - Blood pressure increased [Unknown]
  - Drug interaction [Unknown]
